FAERS Safety Report 10736105 (Version 1)
Quarter: 2015Q1

REPORT INFORMATION
  Report Type: Spontaneous
  Country: US (occurrence: None)
  Receive Date: 20150122
  Receipt Date: 20150122
  Transmission Date: 20150721
  Serious: No
  Sender: FDA-Public Use
  Company Number: None

PATIENT
  Age: 5 Month
  Sex: Male
  Weight: 30.84 kg

DRUGS (1)
  1. METHYLPHENIDATE ER 27 MG MALLINCKRODT [Suspect]
     Active Substance: METHYLPHENIDATE HYDROCHLORIDE
     Indication: ATTENTION DEFICIT/HYPERACTIVITY DISORDER
     Route: 048
     Dates: start: 20150101, end: 20150106

REACTIONS (6)
  - Malaise [None]
  - Head discomfort [None]
  - Fall [None]
  - Unresponsive to stimuli [None]
  - Tremor [None]
  - Product substitution issue [None]

NARRATIVE: CASE EVENT DATE: 20150106
